FAERS Safety Report 20810202 (Version 2)
Quarter: 2022Q2

REPORT INFORMATION
  Report Type: Spontaneous
  Country: AU (occurrence: AU)
  Receive Date: 20220510
  Receipt Date: 20220513
  Transmission Date: 20220720
  Serious: Yes (Other)
  Sender: FDA-Public Use
  Company Number: AU-PFIZER INC-202200661665

PATIENT
  Sex: Male

DRUGS (4)
  1. LIPITOR [Suspect]
     Active Substance: ATORVASTATIN CALCIUM
     Indication: Blood cholesterol increased
     Dosage: UNK
     Dates: start: 202204
  2. FISH OIL [Concomitant]
     Active Substance: FISH OIL
  3. METAMUCIL [Concomitant]
     Active Substance: PLANTAGO SEED
  4. PSYLLIUM HUSK [Concomitant]
     Active Substance: PSYLLIUM HUSK

REACTIONS (9)
  - Suicidal ideation [Unknown]
  - Anxiety [Unknown]
  - Depression [Unknown]
  - Irritability [Unknown]
  - Anger [Unknown]
  - Violence-related symptom [Unknown]
  - Personality change [Unknown]
  - Sleep disorder [Unknown]
  - Nightmare [Unknown]
